FAERS Safety Report 23820008 (Version 1)
Quarter: 2024Q2

REPORT INFORMATION
  Report Type: Spontaneous
  Country: US (occurrence: None)
  Receive Date: 20240503
  Receipt Date: 20240503
  Transmission Date: 20240716
  Serious: No
  Sender: FDA-Public Use
  Company Number: None

PATIENT
  Age: 33 Year
  Sex: Female

DRUGS (1)
  1. UP AND UP TIOCONAZOLE 1 [Suspect]
     Active Substance: TIOCONAZOLE
     Indication: Fungal infection
     Dosage: OTHER QUANTITY : 1 CAPSULE(S);?FREQUENCY : AT BEDTIME;?
     Route: 067
     Dates: start: 20240502

REACTIONS (2)
  - Vulvovaginal pruritus [None]
  - Condition aggravated [None]
